FAERS Safety Report 25738119 (Version 3)
Quarter: 2025Q3

REPORT INFORMATION
  Report Type: Spontaneous
  Country: JP (occurrence: JP)
  Receive Date: 20250829
  Receipt Date: 20250923
  Transmission Date: 20251021
  Serious: No
  Sender: CSL BEHRING
  Company Number: JP-BEH-2025217286

PATIENT
  Age: 85 Year
  Sex: Male
  Weight: 47.3 kg

DRUGS (5)
  1. KORSUVA [Suspect]
     Active Substance: DIFELIKEFALIN ACETATE
     Indication: Pruritus
     Route: 042
     Dates: start: 202402, end: 202501
  2. CANDESARTAN [Concomitant]
     Active Substance: CANDESARTAN
  3. LORATADINE [Concomitant]
     Active Substance: LORATADINE
  4. LANSOPRAZOLE [Concomitant]
     Active Substance: LANSOPRAZOLE
  5. BISOPROLOL [Concomitant]
     Active Substance: BISOPROLOL

REACTIONS (1)
  - Pneumonia aspiration [Fatal]

NARRATIVE: CASE EVENT DATE: 20250105
